FAERS Safety Report 9732714 (Version 1)
Quarter: 2013Q4

REPORT INFORMATION
  Report Type: Spontaneous
  Country: US (occurrence: None)
  Receive Date: 20131204
  Receipt Date: 20131204
  Transmission Date: 20140711
  Serious: Yes (Life-Threatening, Hospitalization)
  Sender: FDA-Public Use
  Company Number: None

PATIENT
  Age: 22 Year
  Sex: Female
  Weight: 86.2 kg

DRUGS (1)
  1. MIRENA IUD BAYER [Suspect]
     Dates: start: 20110810, end: 20131202

REACTIONS (3)
  - Ectopic pregnancy with contraceptive device [None]
  - Maternal exposure during pregnancy [None]
  - Ruptured ectopic pregnancy [None]
